FAERS Safety Report 22314009 (Version 2)
Quarter: 2023Q2

REPORT INFORMATION
  Report Type: Report from Study
  Country: CO (occurrence: CO)
  Receive Date: 20230512
  Receipt Date: 20230606
  Transmission Date: 20230722
  Serious: Yes (Hospitalization, Other)
  Sender: FDA-Public Use
  Company Number: CO-JNJFOC-20230519124

PATIENT
  Age: 48 Year
  Sex: Female
  Weight: 87 kg

DRUGS (16)
  1. MACITENTAN [Suspect]
     Active Substance: MACITENTAN
     Indication: Pulmonary arterial hypertension
     Dosage: LABEL 222861 AND 330742
     Route: 048
     Dates: start: 20230426, end: 20230501
  2. FOLIC ACID [Concomitant]
     Active Substance: FOLIC ACID
     Indication: Systemic scleroderma
     Route: 048
     Dates: start: 20140101
  3. METHOTREXATE [Concomitant]
     Active Substance: METHOTREXATE
     Indication: Systemic scleroderma
     Route: 048
     Dates: start: 20140101
  4. NIFEDIPINE [Concomitant]
     Active Substance: NIFEDIPINE
     Indication: Systemic scleroderma
     Route: 048
     Dates: start: 20141101
  5. ESOMEPRAZOLE [Concomitant]
     Active Substance: ESOMEPRAZOLE
     Indication: Prophylaxis
     Route: 048
     Dates: start: 20160101
  6. ASPIRIN [Concomitant]
     Active Substance: ASPIRIN
     Indication: Systemic scleroderma
     Route: 048
     Dates: start: 20180101
  7. CARVEDILOL [Concomitant]
     Active Substance: CARVEDILOL
     Indication: Pulmonary arterial hypertension
     Route: 048
     Dates: start: 20220401
  8. FUROSEMIDE [Concomitant]
     Active Substance: FUROSEMIDE
     Indication: Pulmonary arterial hypertension
     Route: 048
     Dates: start: 20220401
  9. SILDENAFIL [Concomitant]
     Active Substance: SILDENAFIL
     Indication: Pulmonary arterial hypertension
     Route: 048
     Dates: start: 20220401
  10. VALSARTAN [Concomitant]
     Active Substance: VALSARTAN
     Indication: Pulmonary arterial hypertension
     Route: 048
     Dates: start: 20220801
  11. LEVOTHYROXINE [Concomitant]
     Active Substance: LEVOTHYROXINE
     Indication: Hypothyroidism
     Route: 048
     Dates: start: 20221001
  12. OPSUMIT [Concomitant]
     Active Substance: MACITENTAN
     Indication: Pulmonary arterial hypertension
     Route: 048
     Dates: start: 20220401, end: 20230425
  13. OPSUMIT [Concomitant]
     Active Substance: MACITENTAN
     Route: 048
     Dates: start: 20230508
  14. ACIDO AZELAICO [Concomitant]
     Indication: Skin lesion
     Route: 061
     Dates: start: 20230520
  15. IVERMECTIN [Concomitant]
     Active Substance: IVERMECTIN
     Indication: Skin lesion
     Route: 048
     Dates: start: 20230520
  16. METRONIDAZOLE [Concomitant]
     Active Substance: METRONIDAZOLE
     Indication: Skin lesion
     Route: 061
     Dates: start: 20230520

REACTIONS (2)
  - Rash [Recovered/Resolved]
  - Dyspnoea [Not Recovered/Not Resolved]

NARRATIVE: CASE EVENT DATE: 20230428
